FAERS Safety Report 19753441 (Version 1)
Quarter: 2021Q3

REPORT INFORMATION
  Report Type: Spontaneous
  Country: US (occurrence: US)
  Receive Date: 20210826
  Receipt Date: 20210826
  Transmission Date: 20211014
  Serious: No
  Sender: FDA-Public Use
  Company Number: US-ASTRAZENECA-2021A671305

PATIENT
  Age: 876 Month
  Sex: Female
  Weight: 54 kg

DRUGS (2)
  1. STATINS [Concomitant]
     Active Substance: UNSPECIFIED INGREDIENT
  2. BRILINTA [Suspect]
     Active Substance: TICAGRELOR
     Indication: ANTICOAGULANT THERAPY
     Route: 048

REACTIONS (9)
  - Muscle disorder [Recovered/Resolved]
  - Skin disorder [Recovered/Resolved]
  - Abdominal pain upper [Recovered/Resolved with Sequelae]
  - Dyspepsia [Not Recovered/Not Resolved]
  - Weight gain poor [Recovered/Resolved]
  - Memory impairment [Unknown]
  - Malabsorption [Recovered/Resolved]
  - Dizziness [Unknown]
  - Hyperchlorhydria [Recovered/Resolved]

NARRATIVE: CASE EVENT DATE: 202004
